FAERS Safety Report 7606359-6 (Version None)
Quarter: 2011Q3

REPORT INFORMATION
  Report Type: 
  Country: None (occurrence: None)
  Receive Date: 20110705
  Receipt Date: 20110621
  Transmission Date: 20111222
  Serious: Yes (Life-Threatening, Other)
  Sender: FDA-Public Use
  Company Number: 2011SP029747

PATIENT
  Age: 16 Year
  Sex: Female

DRUGS (2)
  1. CLARINEX D 24 HOUR [Suspect]
     Indication: MULTIPLE ALLERGIES
     Dosage: QD;PO
     Route: 048
  2. CLARINEX D 24 HOUR [Suspect]
     Indication: UPPER RESPIRATORY TRACT CONGESTION
     Dosage: QD;PO
     Route: 048

REACTIONS (2)
  - BRAIN INJURY [None]
  - MOYAMOYA DISEASE [None]
